FAERS Safety Report 16164717 (Version 1)
Quarter: 2019Q2

REPORT INFORMATION
  Report Type: Report from Study
  Country: US (occurrence: US)
  Receive Date: 20190405
  Receipt Date: 20190405
  Transmission Date: 20190711
  Serious: Yes (Hospitalization, Other)
  Sender: FDA-Public Use
  Company Number: US-GILEAD-2019-0400662

PATIENT
  Sex: Female

DRUGS (12)
  1. AMOXICILLIN. [Concomitant]
     Active Substance: AMOXICILLIN
  2. URSODIOL. [Concomitant]
     Active Substance: URSODIOL
  3. DEKASOFT [Concomitant]
  4. ORKAMBI [Concomitant]
     Active Substance: IVACAFTOR\LUMACAFTOR
  5. HUMALOG [Concomitant]
     Active Substance: INSULIN LISPRO
  6. PROVENTIL [Concomitant]
     Active Substance: ALBUTEROL
  7. CIPROFLOXACIN. [Concomitant]
     Active Substance: CIPROFLOXACIN
  8. FISH OIL [Concomitant]
     Active Substance: FISH OIL
  9. SODIUM CHLORIDE. [Concomitant]
     Active Substance: SODIUM CHLORIDE
  10. AZTREONAM LYSINE [Suspect]
     Active Substance: AZTREONAM LYSINE
     Indication: CYSTIC FIBROSIS
     Dosage: 75 MG, Q8H 21 DAYS ON, 28 DAYS OFF
     Route: 055
     Dates: start: 20130803
  11. MELATONIN [Concomitant]
     Active Substance: MELATONIN
  12. RANITIDINE. [Concomitant]
     Active Substance: RANITIDINE

REACTIONS (1)
  - Pneumonia [Unknown]
